FAERS Safety Report 5318214-5 (Version None)
Quarter: 2007Q2

REPORT INFORMATION
  Report Type: 
  Country: None (occurrence: None)
  Receive Date: 20070507
  Receipt Date: 20070425
  Transmission Date: 20071010
  Serious: Yes (Hospitalization, Disabling, Other)
  Sender: FDA-Public Use
  Company Number: JP-PFIZER INC-2007027661

PATIENT
  Sex: Female

DRUGS (19)
  1. MEDROL [Suspect]
     Indication: ASTHMA
     Route: 048
     Dates: start: 20070226, end: 20070306
  2. MEDROL [Suspect]
  3. RINDERON [Suspect]
     Indication: ASTHMA
     Route: 048
     Dates: start: 20070307, end: 20070307
  4. RINDERON [Suspect]
  5. MEIACT [Concomitant]
     Route: 048
  6. SUCRALFATE [Concomitant]
     Route: 048
  7. MUCODYNE [Concomitant]
     Route: 048
  8. QVAR 40 [Concomitant]
     Route: 055
  9. SPIRIVA [Concomitant]
     Route: 055
  10. MONTELUKAST SODIUM [Concomitant]
     Route: 048
  11. UNIPHYL [Concomitant]
     Route: 048
  12. ZADITEN [Concomitant]
  13. HERBAL PREPARATION [Concomitant]
     Route: 048
  14. ANTIDEPRESSANTS [Concomitant]
     Indication: DEPRESSION
  15. PAXIL [Concomitant]
     Route: 048
  16. MYSLEE [Concomitant]
     Route: 048
  17. ROHYPNOL [Concomitant]
     Route: 048
  18. SEPAZON [Concomitant]
     Route: 048
  19. TOLEDOMIN [Concomitant]
     Route: 048

REACTIONS (4)
  - ASTHMA [None]
  - CHORIORETINOPATHY [None]
  - MENTAL DISORDER [None]
  - NASOPHARYNGITIS [None]
